FAERS Safety Report 18501455 (Version 1)
Quarter: 2020Q4

REPORT INFORMATION
  Report Type: Spontaneous
  Country: US (occurrence: US)
  Receive Date: 20201113
  Receipt Date: 20201113
  Transmission Date: 20210114
  Serious: Yes (Hospitalization)
  Sender: FDA-Public Use
  Company Number: None

PATIENT
  Sex: Male

DRUGS (12)
  1. FEROSEMIDE [Concomitant]
  2. PRAVASTATIN. [Concomitant]
     Active Substance: PRAVASTATIN
  3. ALLOPURINOL. [Concomitant]
     Active Substance: ALLOPURINOL
  4. METOPROLOL TARTRATE. [Concomitant]
     Active Substance: METOPROLOL TARTRATE
  5. HYDRALAZINE [Concomitant]
     Active Substance: HYDRALAZINE HYDROCHLORIDE
  6. MAGNESIUM [Concomitant]
     Active Substance: MAGNESIUM
  7. PROMACTA [Suspect]
     Active Substance: ELTROMBOPAG OLAMINE
     Indication: BONE MARROW TRANSPLANT
     Route: 048
     Dates: start: 20200325
  8. ACYCLOVIR. [Concomitant]
     Active Substance: ACYCLOVIR
  9. CYCLOSPORINE. [Concomitant]
     Active Substance: CYCLOSPORINE
  10. ISORB DIN [Concomitant]
  11. SPIRONOLACT [Concomitant]
     Active Substance: SPIRONOLACTONE
  12. VITAMIN B-1 [Concomitant]
     Active Substance: THIAMINE HYDROCHLORIDE

REACTIONS (1)
  - Complications of bone marrow transplant [None]
